FAERS Safety Report 7716146-6 (Version None)
Quarter: 2011Q3

REPORT INFORMATION
  Report Type: 
  Country: None (occurrence: None)
  Receive Date: 20110823
  Receipt Date: 20110810
  Transmission Date: 20111222
  Serious: Yes (Congenital Anomaly)
  Sender: FDA-Public Use
  Company Number: 2011MA011975

PATIENT
  Sex: Female

DRUGS (4)
  1. DIORALYTE [Concomitant]
  2. TRIMETHOPRIM [Concomitant]
  3. VENLAFAXINE HCL [Suspect]
     Indication: DEPRESSION
     Dosage: 37.5 MG
     Dates: start: 20100125
  4. PROCHLORPERAZINE [Concomitant]

REACTIONS (2)
  - POLYDACTYLY [None]
  - MATERNAL DRUGS AFFECTING FOETUS [None]
